FAERS Safety Report 13533315 (Version 1)
Quarter: 2017Q2

REPORT INFORMATION
  Report Type: Report from Study
  Country: None (occurrence: AR)
  Receive Date: 20170510
  Receipt Date: 20170510
  Transmission Date: 20170830
  Serious: Yes (Life-Threatening, Other)
  Sender: FDA-Public Use
  Company Number: AR-ABBVIE-17P-007-1970556-00

PATIENT
  Age: 49 Year
  Sex: Female

DRUGS (1)
  1. HUMIRA [Suspect]
     Active Substance: ADALIMUMAB
     Indication: PSORIASIS
     Route: 058
     Dates: start: 20140923, end: 20170327

REACTIONS (5)
  - Cardio-respiratory arrest [Recovered/Resolved]
  - Loss of consciousness [Recovered/Resolved]
  - Psoriasis [Not Recovered/Not Resolved]
  - Asthmatic crisis [Recovered/Resolved]
  - Cardiac murmur [Not Recovered/Not Resolved]

NARRATIVE: CASE EVENT DATE: 201703
